APPROVED DRUG PRODUCT: AMBISOME
Active Ingredient: AMPHOTERICIN B
Strength: 50MG/VIAL
Dosage Form/Route: INJECTABLE, LIPOSOMAL;INJECTION
Application: N050740 | Product #001 | TE Code: AB
Applicant: ASTELLAS PHARMA US INC
Approved: Aug 11, 1997 | RLD: Yes | RS: Yes | Type: RX